FAERS Safety Report 5976714-9 (Version None)
Quarter: 2008Q4

REPORT INFORMATION
  Report Type: 
  Country: None (occurrence: None)
  Receive Date: 20081203
  Receipt Date: 20081124
  Transmission Date: 20090506
  Serious: Yes (Other)
  Sender: FDA-Public Use
  Company Number: BR-BAYER-200821476LA

PATIENT
  Age: 51 Year
  Sex: Male

DRUGS (1)
  1. LEVITRA [Suspect]
     Indication: ERECTILE DYSFUNCTION
     Dosage: TOTAL DAILY DOSE: 10 MG  UNIT DOSE: 10 MG
     Route: 048
     Dates: start: 20051101

REACTIONS (6)
  - FEELING HOT [None]
  - HEADACHE [None]
  - HYPOTENSION [None]
  - INFLUENZA LIKE ILLNESS [None]
  - LABYRINTHITIS [None]
  - RHINITIS ALLERGIC [None]
